FAERS Safety Report 19093807 (Version 1)
Quarter: 2021Q2

REPORT INFORMATION
  Report Type: Spontaneous
  Country: US (occurrence: US)
  Receive Date: 20210405
  Receipt Date: 20210405
  Transmission Date: 20210717
  Serious: Yes (Other)
  Sender: FDA-Public Use
  Company Number: US-PFIZER INC-2021184630

PATIENT
  Age: 55 Year
  Sex: Male

DRUGS (5)
  1. GENTAMICIN SULFATE. [Suspect]
     Active Substance: GENTAMICIN SULFATE
     Indication: IMMUNE THROMBOCYTOPENIA
     Dosage: UNK
  2. DAPTOMYCIN. [Suspect]
     Active Substance: DAPTOMYCIN
     Indication: STAPHYLOCOCCAL BACTERAEMIA
  3. NAFCILLIN [Suspect]
     Active Substance: NAFCILLIN SODIUM
     Dosage: UNK
  4. GENTAMICIN SULFATE. [Suspect]
     Active Substance: GENTAMICIN SULFATE
     Indication: STAPHYLOCOCCAL BACTERAEMIA
  5. DAPTOMYCIN. [Suspect]
     Active Substance: DAPTOMYCIN
     Indication: IMMUNE THROMBOCYTOPENIA
     Dosage: UNK

REACTIONS (4)
  - Treatment failure [Unknown]
  - Feeling abnormal [Unknown]
  - Drug resistance [Unknown]
  - Osteomyelitis [Unknown]
